FAERS Safety Report 16613567 (Version 2)
Quarter: 2020Q2

REPORT INFORMATION
  Report Type: Spontaneous
  Country: IT (occurrence: IT)
  Receive Date: 20190723
  Receipt Date: 20200616
  Transmission Date: 20200713
  Serious: Yes (Other)
  Sender: FDA-Public Use
  Company Number: IT-SUN PHARMACEUTICAL INDUSTRIES LTD-2019R1-213799

PATIENT
  Age: 29 Day

DRUGS (1)
  1. HYDROCHLOROTHIAZIDE. [Suspect]
     Active Substance: HYDROCHLOROTHIAZIDE
     Indication: DIURETIC THERAPY
     Dosage: UNK
     Route: 065

REACTIONS (4)
  - Hypochloraemia [Recovered/Resolved]
  - Metabolic alkalosis [Recovered/Resolved]
  - Alkalosis hypokalaemic [Recovered/Resolved]
  - Electrocardiogram QT prolonged [Recovered/Resolved]
